FAERS Safety Report 4865747-1 (Version None)
Quarter: 2005Q4

REPORT INFORMATION
  Report Type: 
  Country: None (occurrence: None)
  Receive Date: 20051223
  Receipt Date: 20050928
  Transmission Date: 20060501
  Serious: Yes (Hospitalization)
  Sender: FDA-Public Use
  Company Number: PHBS2005JP14457

PATIENT
  Age: 27 Year
  Sex: Male

DRUGS (2)
  1. PREDONINE [Suspect]
     Indication: NASOPHARYNGITIS
     Dosage: 5 MG/DAY
     Route: 048
     Dates: start: 20040617, end: 20040101
  2. VOLTAREN [Suspect]
     Indication: ARTHRALGIA
     Dosage: UNK, UNK
     Route: 048
     Dates: start: 20040617, end: 20040101

REACTIONS (10)
  - BLOOD ALBUMIN INCREASED [None]
  - BLOOD CREATININE INCREASED [None]
  - BLOOD UREA INCREASED [None]
  - NEPHROTIC SYNDROME [None]
  - OEDEMA PERIPHERAL [None]
  - POST STREPTOCOCCAL GLOMERULONEPHRITIS [None]
  - PROTEIN URINE PRESENT [None]
  - RENAL IMPAIRMENT [None]
  - STREPTOCOCCAL SEROLOGY POSITIVE [None]
  - URINE OUTPUT DECREASED [None]
